FAERS Safety Report 6897331-2 (Version None)
Quarter: 2010Q3

REPORT INFORMATION
  Report Type: 
  Country: None (occurrence: None)
  Receive Date: 20100729
  Receipt Date: 20080411
  Transmission Date: 20110219
  Serious: Yes (Other)
  Sender: FDA-Public Use
  Company Number: 2008-00374FE

PATIENT
  Age: 6 Year
  Sex: Female

DRUGS (1)
  1. GROWTH HORMONE () (HUMAN GROWTH HORMONE, RECOMBINANT) [Suspect]
     Indication: GROWTH HORMONE DEFICIENCY
     Dosage: 24 SC
     Route: 058

REACTIONS (5)
  - BLOOD LACTIC ACID INCREASED [None]
  - FACTOR I DEFICIENCY [None]
  - MITOCHONDRIAL CYTOPATHY [None]
  - PANCREATITIS ACUTE [None]
  - PYRUVATE KINASE DEFICIENCY ANAEMIA [None]
